FAERS Safety Report 7396779-X (Version None)
Quarter: 2011Q2

REPORT INFORMATION
  Report Type: 
  Country: None (occurrence: None)
  Receive Date: 20110406
  Receipt Date: 20110328
  Transmission Date: 20111010
  Serious: Yes (Death)
  Sender: FDA-Public Use
  Company Number: US-JNJFOC-20091203534

PATIENT
  Sex: Male

DRUGS (14)
  1. DURAGESIC [Suspect]
     Indication: NEUROPATHY PERIPHERAL
     Route: 062
  2. TRIHEXYPHENIDYL [Concomitant]
  3. ZYPREXA [Concomitant]
  4. PIROXICAM [Concomitant]
  5. SIMVASTATIN [Concomitant]
  6. EPIPEN [Concomitant]
  7. GLIPIZIDE [Concomitant]
  8. METFORMIN [Concomitant]
  9. DIAZEPAM [Concomitant]
  10. CITALOPRAM HYDROBROMIDE [Concomitant]
  11. TEGRETOL [Concomitant]
  12. DURAGESIC [Suspect]
     Indication: PAIN
     Route: 062
  13. LISINOPRIL [Concomitant]
  14. OXYCODONE [Concomitant]

REACTIONS (5)
  - TOXICITY TO VARIOUS AGENTS [None]
  - WRONG TECHNIQUE IN DRUG USAGE PROCESS [None]
  - PRODUCT ADHESION ISSUE [None]
  - DRUG INEFFECTIVE [None]
  - SEDATION [None]
